FAERS Safety Report 9840179 (Version 1)
Quarter: 2014Q1

REPORT INFORMATION
  Report Type: Spontaneous
  Country: US (occurrence: None)
  Receive Date: 20140121
  Receipt Date: 20140121
  Transmission Date: 20141002
  Serious: Yes (Hospitalization)
  Sender: FDA-Public Use
  Company Number: None

PATIENT
  Age: 29 Year
  Sex: Female
  Weight: 97.8 kg

DRUGS (1)
  1. ESTRADIOL [Suspect]
     Indication: DEPRESSION
     Dosage: 1 UNIT
     Route: 061
     Dates: start: 20130819, end: 20131216

REACTIONS (3)
  - Blood disorder [None]
  - Depression [None]
  - Suicidal ideation [None]
